FAERS Safety Report 8157954-X (Version None)
Quarter: 2012Q1

REPORT INFORMATION
  Report Type: 
  Country: None (occurrence: None)
  Receive Date: 20120222
  Receipt Date: 20120211
  Transmission Date: 20120608
  Serious: Yes (Hospitalization)
  Sender: FDA-Public Use
  Company Number: PHHY2011AU77142

PATIENT
  Sex: Male

DRUGS (3)
  1. RISPERIDONE [Concomitant]
     Dosage: 50 MG/FORTNIGHT
  2. CLOZARIL [Suspect]
     Indication: SCHIZOPHRENIA
     Dosage: 75 MG
     Dates: start: 20110711, end: 20110912
  3. CLOZARIL [Suspect]
     Dosage: 300 MG
     Dates: start: 20120211

REACTIONS (5)
  - OVERDOSE [None]
  - DEPRESSED MOOD [None]
  - AGGRESSION [None]
  - MEDICATION ERROR [None]
  - PERICARDIAL EFFUSION [None]
